FAERS Safety Report 8654224 (Version 3)
Quarter: 2012Q4

REPORT INFORMATION
  Report Type: 
  Country: US (occurrence: US)
  Receive Date: 20120709
  Receipt Date: 20121010
  Transmission Date: 20130627
  Serious: No
  Sender: FDA-Public Use
  Company Number: US-JNJFOC-20120701539

PATIENT
  Sex: Female

DRUGS (9)
  1. DURAGESIC [Suspect]
     Indication: PRODUCT USED FOR UNKNOWN INDICATION
     Route: 062
  2. DURAGESIC [Suspect]
     Indication: PRODUCT USED FOR UNKNOWN INDICATION
     Route: 062
     Dates: start: 200801
  3. DURAGESIC [Suspect]
     Indication: PRODUCT USED FOR UNKNOWN INDICATION
     Route: 062
     Dates: start: 200709
  4. OXYCONTIN [Concomitant]
     Indication: PAIN
     Route: 065
  5. DILAUDID [Concomitant]
     Indication: PAIN
     Route: 065
  6. CLONAZEPAM [Concomitant]
     Indication: NERVOUSNESS
     Route: 065
  7. BUPROPION [Concomitant]
     Indication: DEPRESSION
     Route: 065
  8. VIVELLE [Concomitant]
     Indication: HORMONE REPLACEMENT THERAPY
     Route: 065
  9. SENNA [Concomitant]
     Indication: CONSTIPATION
     Dosage: 2 or 3 BID
     Route: 065

REACTIONS (4)
  - Hyperhidrosis [Unknown]
  - Inappropriate schedule of drug administration [Unknown]
  - Product quality issue [Unknown]
  - Application site irritation [Unknown]
